FAERS Safety Report 17820966 (Version 1)
Quarter: 2020Q2

REPORT INFORMATION
  Report Type: Spontaneous
  Country: FR (occurrence: FR)
  Receive Date: 20200525
  Receipt Date: 20200525
  Transmission Date: 20200714
  Serious: Yes (Hospitalization, Other)
  Sender: FDA-Public Use
  Company Number: FR-NOVOPROD-720959

PATIENT
  Age: 46 Year
  Sex: Male
  Weight: 55 kg

DRUGS (1)
  1. NOVORAPID [Suspect]
     Active Substance: INSULIN ASPART
     Indication: DIABETES MELLITUS
     Dosage: FROM 5 TO 10 IU
     Route: 065
     Dates: start: 20200320, end: 20200324

REACTIONS (3)
  - Malnutrition [Recovering/Resolving]
  - Joint swelling [Unknown]
  - Infection [Unknown]

NARRATIVE: CASE EVENT DATE: 20200320
